FAERS Safety Report 24320272 (Version 2)
Quarter: 2024Q4

REPORT INFORMATION
  Report Type: Spontaneous
  Country: US (occurrence: US)
  Receive Date: 20240914
  Receipt Date: 20241125
  Transmission Date: 20250115
  Serious: No
  Sender: MERCK
  Company Number: US-009507513-2409USA002864

PATIENT
  Age: 38 Year
  Sex: Male

DRUGS (17)
  1. KEYTRUDA [Suspect]
     Active Substance: PEMBROLIZUMAB
     Indication: Salivary gland cancer
     Dosage: UNK, Q3WEEKS
     Route: 065
     Dates: start: 20240803
  2. CABOMETYX [Suspect]
     Active Substance: CABOZANTINIB S-MALATE
     Indication: Salivary gland cancer
     Dosage: 60 MILLIGRAM, QD
     Route: 065
     Dates: start: 20240803, end: 20240909
  3. CABOMETYX [Suspect]
     Active Substance: CABOZANTINIB S-MALATE
     Dosage: 60 MILLIGRAM, QOD
     Route: 065
     Dates: start: 20241014, end: 202410
  4. CABOMETYX [Suspect]
     Active Substance: CABOZANTINIB S-MALATE
     Dosage: 60 MILLIGRAM, QOD
     Route: 065
     Dates: start: 20241026
  5. TYLENOL EXTRA STRENGTH [Concomitant]
     Active Substance: ACETAMINOPHEN
  6. PRILOSEC [Concomitant]
     Active Substance: OMEPRAZOLE MAGNESIUM
  7. PREDNISONE [Concomitant]
     Active Substance: PREDNISONE
  8. ROXICODONE [Concomitant]
     Active Substance: OXYCODONE HYDROCHLORIDE
  9. SYNTHROID [Concomitant]
     Active Substance: LEVOTHYROXINE SODIUM
  10. XELODA [Concomitant]
     Active Substance: CAPECITABINE
  11. MOTRIN [Concomitant]
     Active Substance: IBUPROFEN
  12. ZOFRAN [Concomitant]
     Active Substance: ONDANSETRON HYDROCHLORIDE
  13. CELLCEPT [Concomitant]
     Active Substance: MYCOPHENOLATE MOFETIL
  14. COLACE [Concomitant]
     Active Substance: DOCUSATE SODIUM
  15. CLOBETASOL [Concomitant]
     Active Substance: CLOBETASOL
  16. GABAPENTIN [Concomitant]
     Active Substance: GABAPENTIN
  17. REFRESH LACRI-LUBE [Concomitant]
     Active Substance: MINERAL OIL\PETROLATUM

REACTIONS (10)
  - Dysphonia [Recovered/Resolved]
  - Rash [Recovering/Resolving]
  - Nausea [Not Recovered/Not Resolved]
  - Diarrhoea [Recovered/Resolved]
  - Anosmia [Recovered/Resolved]
  - Ageusia [Recovered/Resolved]
  - Insomnia [Not Recovered/Not Resolved]
  - Thermal burn [Recovering/Resolving]
  - Jaw disorder [Recovered/Resolved]
  - Off label use [Unknown]

NARRATIVE: CASE EVENT DATE: 20240101
